FAERS Safety Report 6637751-4 (Version None)
Quarter: 2010Q1

REPORT INFORMATION
  Report Type: 
  Country: None (occurrence: None)
  Receive Date: 20100317
  Receipt Date: 20100309
  Transmission Date: 20100710
  Serious: Yes (Hospitalization)
  Sender: FDA-Public Use
  Company Number: FR-BRISTOL-MYERS SQUIBB COMPANY-15012842

PATIENT
  Age: 31 Year
  Sex: Female

DRUGS (16)
  1. ELISOR TABS 20 MG [Suspect]
     Route: 048
     Dates: start: 20091210, end: 20091215
  2. PARACETAMOL [Suspect]
     Dates: start: 20091130
  3. ACUPAN [Suspect]
     Dosage: 06-DEC-2009 TO 08-DEC-2009 ,FROM 12-DEC-2009 TO 15-DEC-2009
     Route: 042
     Dates: start: 20091206, end: 20091215
  4. PLAQUENIL [Suspect]
     Dosage: 2DF-2TABS 200 MG
     Route: 048
     Dates: start: 20091130, end: 20091215
  5. DICLOFENAC [Suspect]
     Dates: start: 20091130
  6. DESOGESTREL AND ETHINYL ESTRADIOL [Suspect]
     Dates: start: 20091130, end: 20091204
  7. SPECIAFOLDINE [Suspect]
     Dates: start: 20091130
  8. OGASTORO [Suspect]
     Dates: start: 20091130
  9. KARDEGIC [Suspect]
     Dates: start: 20091130
  10. LOVENOX [Suspect]
     Dates: start: 20091204, end: 20091207
  11. NICOTINE [Suspect]
     Dates: start: 20091211, end: 20091215
  12. CERAZETTE [Suspect]
     Dates: start: 20091204
  13. OXYCODONE HCL [Suspect]
     Dates: start: 20091208
  14. DILTIAZEM HCL [Suspect]
     Dosage: 1DF-1TABS
     Dates: start: 20091216
  15. XENETIX [Suspect]
     Dosage: INJECTION
     Dates: start: 20091210
  16. NEXIUM [Suspect]
     Dates: start: 20091204, end: 20091214

REACTIONS (2)
  - CONDITION AGGRAVATED [None]
  - DERMATITIS BULLOUS [None]
